FAERS Safety Report 6429087-1 (Version None)
Quarter: 2009Q4

REPORT INFORMATION
  Report Type: 
  Country: None (occurrence: None)
  Receive Date: 20091105
  Receipt Date: 20091028
  Transmission Date: 20100525
  Serious: Yes (Hospitalization)
  Sender: FDA-Public Use
  Company Number: US-BAYER-200916143BCC

PATIENT
  Sex: Male

DRUGS (1)
  1. BRONKAID SOLID DOSE [Suspect]
     Indication: DRUG USE FOR UNKNOWN INDICATION
     Dosage: UNIT DOSE: 1 DF
     Route: 048

REACTIONS (3)
  - HYPERTENSION [None]
  - NERVOUSNESS [None]
  - TACHYCARDIA [None]
